FAERS Safety Report 7131144-1 (Version None)
Quarter: 2010Q4

REPORT INFORMATION
  Report Type: 
  Country: None (occurrence: None)
  Receive Date: 20101201
  Receipt Date: 20101125
  Transmission Date: 20110411
  Serious: Yes (Hospitalization)
  Sender: FDA-Public Use
  Company Number: AU-B.I. PHARMACEUTICALS,INC./RIDGEFIELD-2010-AU-00819AU

PATIENT
  Age: 60 Year
  Sex: Male

DRUGS (2)
  1. SPIRIVA [Suspect]
  2. SERETIDE [Concomitant]

REACTIONS (1)
  - LARYNGEAL CANCER [None]
